FAERS Safety Report 4323699-7 (Version None)
Quarter: 2004Q1

REPORT INFORMATION
  Report Type: 
  Country: None (occurrence: None)
  Receive Date: 20040323
  Receipt Date: 20040309
  Transmission Date: 20041129
  Serious: No
  Sender: FDA-Public Use
  Company Number: 2004UW04613

PATIENT
  Age: 65 Year
  Sex: Female

DRUGS (5)
  1. CRESTOR [Suspect]
     Dates: start: 20030101
  2. CRESTOR [Suspect]
     Dosage: 100 MG DAILY PO
     Route: 048
     Dates: start: 20040101
  3. SYNTHROID [Concomitant]
  4. PANTOLOC [Concomitant]
  5. BROMAZEPAM [Concomitant]

REACTIONS (5)
  - ASTHENIA [None]
  - EPISTAXIS [None]
  - HAEMORRHAGE [None]
  - HEART RATE ABNORMAL [None]
  - PALLOR [None]
